FAERS Safety Report 21384315 (Version 1)
Quarter: 2022Q3

REPORT INFORMATION
  Report Type: Spontaneous
  Country: None (occurrence: CN)
  Receive Date: 20220928
  Receipt Date: 20220928
  Transmission Date: 20221026
  Serious: Yes (Hospitalization)
  Sender: FDA-Public Use
  Company Number: CN-Jiangsu Hengrui Medicine Co., Ltd.-2133249

PATIENT
  Age: 70 Year
  Sex: Female
  Weight: 53 kg

DRUGS (2)
  1. FONDAPARINUX SODIUM [Suspect]
     Active Substance: FONDAPARINUX SODIUM
     Indication: Anticoagulant therapy
     Dates: start: 20220820, end: 20220825
  2. FONDAPARINUX SODIUM [Suspect]
     Active Substance: FONDAPARINUX SODIUM
     Dates: start: 20220826, end: 20220831

REACTIONS (1)
  - Thrombocytosis [Unknown]

NARRATIVE: CASE EVENT DATE: 20220830
